FAERS Safety Report 5875045-5 (Version None)
Quarter: 2008Q3

REPORT INFORMATION
  Report Type: 
  Country: None (occurrence: None)
  Receive Date: 20080904
  Receipt Date: 20080827
  Transmission Date: 20090109
  Serious: Yes (Hospitalization)
  Sender: FDA-Public Use
  Company Number: 032971

PATIENT
  Age: 31 Year
  Sex: Female

DRUGS (7)
  1. DESMOPRESSIN ACETATE [Suspect]
     Indication: DIABETES INSIPIDUS
     Dosage: 0.05 MG IN THE MORNING, ORAL, 0.05 MG AT LUNCH, ORAL, 0.15 MG AT BEDTIME, ORAL
     Route: 048
     Dates: start: 20070201
  2. DESMOPRESSIN ACETATE [Suspect]
     Indication: DIABETES INSIPIDUS
     Dosage: 0.05 MG IN THE MORNING, ORAL, 0.05 MG AT LUNCH, ORAL, 0.15 MG AT BEDTIME, ORAL
     Route: 048
     Dates: start: 20070201
  3. DESMOPRESSIN ACETATE [Suspect]
     Indication: DIABETES INSIPIDUS
     Dosage: 0.05 MG IN THE MORNING, ORAL, 0.05 MG AT LUNCH, ORAL, 0.15 MG AT BEDTIME, ORAL
     Route: 048
     Dates: start: 20070201
  4. DIFLUCAN [Concomitant]
  5. MULTIVITAMINS (ERGOCALCIFEROL, PANTHENOL, NICOTINAMIDE, RIBOFLAVIN, TH [Concomitant]
  6. ZYRTEC [Concomitant]
  7. OMEPRAZOLE [Concomitant]

REACTIONS (3)
  - DRUG DISPENSING ERROR [None]
  - INFECTIOUS MONONUCLEOSIS [None]
  - OVERDOSE [None]
